FAERS Safety Report 21649725 (Version 1)
Quarter: 2022Q4

REPORT INFORMATION
  Report Type: Spontaneous
  Country: GB (occurrence: GB)
  Receive Date: 20221128
  Receipt Date: 20221128
  Transmission Date: 20230113
  Serious: Yes (Other)
  Sender: FDA-Public Use
  Company Number: None

PATIENT
  Sex: Male

DRUGS (2)
  1. OLANZAPINE [Suspect]
     Active Substance: OLANZAPINE
     Indication: Schizoaffective disorder
     Dosage: QUNKNOWN
     Route: 065
  2. LORAZEPAM [Concomitant]
     Active Substance: LORAZEPAM
     Indication: Anxiety
     Dosage: UNKNOWN
     Route: 065

REACTIONS (6)
  - Psychotic disorder [Unknown]
  - Bipolar disorder [Unknown]
  - Affective disorder [Unknown]
  - Abdominal pain upper [Unknown]
  - Sleep disorder [Unknown]
  - Weight increased [Unknown]
